FAERS Safety Report 8540682-6 (Version None)
Quarter: 2012Q3

REPORT INFORMATION
  Report Type: 
  Country: None (occurrence: None)
  Receive Date: 20120726
  Receipt Date: 20120717
  Transmission Date: 20120928
  Serious: Yes (Other)
  Sender: FDA-Public Use
  Company Number: US-ASTRAZENECA-2012SE26896

PATIENT
  Age: 50 Year
  Sex: Female
  Weight: 96.6 kg

DRUGS (1)
  1. TOPROL-XL [Suspect]
     Indication: HYPERTENSION
     Route: 048
     Dates: start: 20070425

REACTIONS (2)
  - HYPERTHYROIDISM [None]
  - THYROID CANCER [None]
